FAERS Safety Report 13260453 (Version 2)
Quarter: 2017Q2

REPORT INFORMATION
  Report Type: Spontaneous
  Country: US (occurrence: US)
  Receive Date: 20170222
  Receipt Date: 20170526
  Transmission Date: 20170830
  Serious: No
  Sender: FDA-Public Use
  Company Number: US-ASTRAZENECA-2017SE16716

PATIENT
  Age: 25173 Day
  Sex: Female
  Weight: 65.8 kg

DRUGS (5)
  1. DULERA [Concomitant]
     Active Substance: FORMOTEROL FUMARATE DIHYDRATE\MOMETASONE FUROATE
     Indication: CHRONIC OBSTRUCTIVE PULMONARY DISEASE
     Dosage: 100 MCG/5 MCG 2 PUFFS, TWO TIMES A DAY
     Route: 055
     Dates: start: 2011
  2. ZETIA [Concomitant]
     Active Substance: EZETIMIBE
     Indication: HYPERCHOLESTEROLAEMIA
     Route: 048
     Dates: start: 2007
  3. ZEBETA [Concomitant]
     Active Substance: BISOPROLOL FUMARATE
     Indication: HEART RATE INCREASED
     Route: 048
     Dates: start: 1995
  4. XOPENEX [Concomitant]
     Active Substance: LEVALBUTEROL HYDROCHLORIDE
     Indication: INHALATION THERAPY
     Route: 055
     Dates: start: 2011
  5. TUDORZA PRESSAIR [Suspect]
     Active Substance: ACLIDINIUM BROMIDE
     Indication: CHRONIC OBSTRUCTIVE PULMONARY DISEASE
     Route: 055
     Dates: start: 2013

REACTIONS (2)
  - Anxiety [Recovered/Resolved]
  - Device malfunction [Unknown]

NARRATIVE: CASE EVENT DATE: 20170210
